FAERS Safety Report 8942021 (Version 2)
Quarter: 2012Q4

REPORT INFORMATION
  Report Type: 
  Country: US (occurrence: US)
  Receive Date: 20121130
  Receipt Date: 20121212
  Transmission Date: 20130627
  Serious: No
  Sender: FDA-Public Use
  Company Number: US-ASTRAZENECA-2012SE87622

PATIENT
  Age: 83 Year
  Sex: Male
  Weight: 80.7 kg

DRUGS (9)
  1. METOPROLOL [Suspect]
     Indication: BLOOD PRESSURE ABNORMAL
     Route: 048
     Dates: start: 201205
  2. METOPROLOL [Suspect]
     Indication: BLOOD PRESSURE ABNORMAL
     Route: 048
     Dates: start: 201211
  3. BRILINTA [Suspect]
     Route: 048
     Dates: start: 20121024, end: 201210
  4. PLAVIX [Suspect]
     Indication: PROPHYLAXIS
     Route: 048
     Dates: start: 2012, end: 201210
  5. PLAVIX [Suspect]
     Indication: PROPHYLAXIS
     Route: 048
     Dates: start: 201211
  6. ASPIRIN [Concomitant]
     Route: 048
  7. TRIPLE ANTIBIOTIC OINTMENT [Concomitant]
     Indication: RASH PRURITIC
     Dosage: AS REQUIRED
     Route: 061
     Dates: start: 201211
  8. LIPITOR [Concomitant]
     Indication: BLOOD CHOLESTEROL ABNORMAL
     Route: 048
  9. LIPITOR [Concomitant]
     Indication: BLOOD CHOLESTEROL ABNORMAL
     Route: 048

REACTIONS (9)
  - Pain in extremity [Recovered/Resolved]
  - Malaise [Recovered/Resolved]
  - Hypoaesthesia [Recovering/Resolving]
  - Dyspnoea [Recovered/Resolved]
  - Memory impairment [Recovering/Resolving]
  - Rash pruritic [Not Recovered/Not Resolved]
  - Rash [Not Recovered/Not Resolved]
  - Asthenia [Unknown]
  - Heart rate decreased [Unknown]
